FAERS Safety Report 23782649 (Version 1)
Quarter: 2024Q2

REPORT INFORMATION
  Report Type: Spontaneous
  Country: FR (occurrence: FR)
  Receive Date: 20240425
  Receipt Date: 20240425
  Transmission Date: 20240715
  Serious: Yes (Death, Life-Threatening)
  Sender: FDA-Public Use
  Company Number: None

PATIENT
  Age: 96 Year
  Sex: Female
  Weight: 45 kg

DRUGS (15)
  1. CLONAZEPAM [Suspect]
     Active Substance: CLONAZEPAM
     Indication: Seizure
     Route: 030
     Dates: start: 20240217, end: 20240217
  2. CLONAZEPAM [Suspect]
     Active Substance: CLONAZEPAM
     Indication: Seizure
     Route: 042
  3. CLONAZEPAM [Suspect]
     Active Substance: CLONAZEPAM
     Indication: Seizure
     Route: 042
  4. Solupred [Concomitant]
     Dosage: 5MG MORNING ?DAILY DOSE: 5 MILLIGRAM
  5. MIANSERIN HYDROCHLORIDE [Concomitant]
     Active Substance: MIANSERIN HYDROCHLORIDE
     Dosage: 10MG IN THE EVENING ?DAILY DOSE: 10 MILLIGRAM
  6. ZOPICLONE [Concomitant]
     Active Substance: ZOPICLONE
     Dosage: 3.75MG IN THE EVENING AT 9PM?DAILY DOSE: 3.75 MILLIGRAM
  7. ALPRAZOLAM [Concomitant]
     Active Substance: ALPRAZOLAM
     Dosage: 0.25MG MORNING, NOON AND EVENING ?DAILY DOSE: 0.75 MILLIGRAM
  8. AMLODIPINE BESYLATE [Concomitant]
     Active Substance: AMLODIPINE BESYLATE
     Dosage: 5MG IN THE MORNING ?DAILY DOSE: 5 MILLIGRAM
  9. LANSOPRAZOLE [Concomitant]
     Active Substance: LANSOPRAZOLE
     Dosage: DAILY DOSE: 15 MILLIGRAM
  10. POLYETHYLENE GLYCOLS [Concomitant]
     Active Substance: POLYETHYLENE GLYCOLS
     Dosage: 1 SACHET MORNING
  11. Meteospasmyl [Concomitant]
     Dosage: 20 MORNING NOON AND EVENING ?DAILY DOSE: 40 MILLIGRAM
  12. FENTANYL [Concomitant]
     Active Substance: FENTANYL\FENTANYL CITRATE
     Dosage: 12 UG PATCH EVERY 72H
  13. MORPHINE SULFATE [Concomitant]
     Active Substance: MORPHINE SULFATE
     Dosage: 4 DROPS IF PAIN EVERY 6H
  14. MORPHINE SULFATE [Concomitant]
     Active Substance: MORPHINE SULFATE
     Dosage: 8 DROPS 30MIN BEFORE DRESSING
  15. CLOMIPRAMINE [Concomitant]
     Active Substance: CLOMIPRAMINE
     Dosage: 10 MORNING AND EVENING ?DAILY DOSE: 20 MILLIGRAM

REACTIONS (5)
  - Status epilepticus [Fatal]
  - Pneumonitis aspiration [Fatal]
  - Somnolence [Recovered/Resolved]
  - Product prescribing error [Recovered/Resolved]
  - Overdose [Recovered/Resolved]

NARRATIVE: CASE EVENT DATE: 20240217
